FAERS Safety Report 7986802-3 (Version None)
Quarter: 2011Q4

REPORT INFORMATION
  Report Type: 
  Country: None (occurrence: None)
  Receive Date: 20111216
  Receipt Date: 20110826
  Transmission Date: 20120403
  Serious: No
  Sender: FDA-Public Use
  Company Number: US-BRISTOL-MYERS SQUIBB COMPANY-16008732

PATIENT
  Age: 71 Year
  Sex: Male

DRUGS (3)
  1. LITHIUM [Concomitant]
  2. ZOLOFT [Concomitant]
     Indication: MAJOR DEPRESSION
     Dates: start: 20110301
  3. ABILIFY [Suspect]
     Indication: MAJOR DEPRESSION
     Dosage: DOSAGE: 20 MG TABLET CUT IN TO TWO =1/2 TABLET(10MG). 30-45 TABS REMAINING

REACTIONS (2)
  - DRUG INEFFECTIVE [None]
  - WRONG TECHNIQUE IN DRUG USAGE PROCESS [None]
